FAERS Safety Report 20871036 (Version 1)
Quarter: 2022Q2

REPORT INFORMATION
  Report Type: Spontaneous
  Country: JP (occurrence: JP)
  Receive Date: 20220525
  Receipt Date: 20220525
  Transmission Date: 20220721
  Serious: Yes (Hospitalization, Other)
  Sender: FDA-Public Use
  Company Number: JP-ASTELLAS-2022JP007295

PATIENT
  Age: 8 Decade
  Sex: Male

DRUGS (1)
  1. PADCEV [Suspect]
     Active Substance: ENFORTUMAB VEDOTIN-EJFV
     Indication: Product used for unknown indication
     Route: 041
     Dates: start: 20220118, end: 20220411

REACTIONS (4)
  - Staphylococcal bacteraemia [Unknown]
  - Staphylococcal sepsis [Unknown]
  - Urinary tract infection staphylococcal [Unknown]
  - Muscle abscess [Unknown]
